FAERS Safety Report 12490366 (Version 2)
Quarter: 2016Q3

REPORT INFORMATION
  Report Type: Report from Study
  Country: RO (occurrence: RO)
  Receive Date: 20160622
  Receipt Date: 20160815
  Transmission Date: 20161109
  Serious: Yes (Hospitalization, Other)
  Sender: FDA-Public Use
  Company Number: RO-ABBVIE-16P-135-1637900-00

PATIENT
  Age: 54 Year
  Sex: Female

DRUGS (8)
  1. VIEKIRAX [Suspect]
     Active Substance: OMBITASVIR\PARITAPREVIR\RITONAVIR
     Indication: HEPATIC CIRRHOSIS
  2. MODERIBA [Suspect]
     Active Substance: RIBAVIRIN
     Indication: CHRONIC HEPATITIS C
     Route: 048
     Dates: start: 20160314, end: 20160605
  3. MODERIBA [Suspect]
     Active Substance: RIBAVIRIN
     Indication: HEPATIC CIRRHOSIS
  4. EXVIERA [Suspect]
     Active Substance: DASABUVIR
     Indication: CHRONIC HEPATITIS C
     Dosage: 1-0-1
     Route: 048
     Dates: start: 20160314, end: 20160605
  5. EXVIERA [Suspect]
     Active Substance: DASABUVIR
     Indication: HEPATIC CIRRHOSIS
  6. VIEKIRAX [Suspect]
     Active Substance: OMBITASVIR\PARITAPREVIR\RITONAVIR
     Indication: CHRONIC HEPATITIS C
     Dosage: 2-0-0
     Route: 048
     Dates: start: 20160314, end: 20160605
  7. CO PRENESSA [Concomitant]
     Indication: HYPERTENSION
     Dosage: 2 MG/0.625 MG
     Route: 048
  8. RYTMONORM [Concomitant]
     Active Substance: PROPAFENONE
     Indication: CARDIAC DISORDER
     Route: 048

REACTIONS (29)
  - Neuralgia [Not Recovered/Not Resolved]
  - Nausea [Recovered/Resolved]
  - Ear pain [Unknown]
  - Angina pectoris [Unknown]
  - Gait disturbance [Recovered/Resolved]
  - Neck pain [Unknown]
  - Nightmare [Recovered/Resolved]
  - Haemoglobin decreased [Unknown]
  - Pruritus [Unknown]
  - Bone pain [Recovered/Resolved]
  - Hepatic pain [Recovered/Resolved]
  - Pain [Unknown]
  - Atrial fibrillation [Unknown]
  - Palpitations [Not Recovered/Not Resolved]
  - Toothache [Unknown]
  - Headache [Unknown]
  - Abdominal distension [Unknown]
  - Blood glucose increased [Unknown]
  - Dry mouth [Unknown]
  - Abdominal pain upper [Recovered/Resolved]
  - Dysphagia [Unknown]
  - Insomnia [Recovered/Resolved]
  - Neuralgia [Unknown]
  - Pruritus [Not Recovered/Not Resolved]
  - Dizziness [Recovered/Resolved]
  - Fatigue [Unknown]
  - Rhinalgia [Unknown]
  - Pain in jaw [Unknown]
  - Epistaxis [Unknown]

NARRATIVE: CASE EVENT DATE: 20160317
